FAERS Safety Report 15096160 (Version 1)
Quarter: 2018Q3

REPORT INFORMATION
  Report Type: Other
  Country: US (occurrence: US)
  Receive Date: 20180702
  Receipt Date: 20180702
  Transmission Date: 20181010
  Serious: No
  Sender: FDA-Public Use
  Company Number: US-EXELTIS USA INC.-2051159

PATIENT
  Age: 48 Year
  Sex: Female

DRUGS (1)
  1. BENZNIDAZOLE. [Suspect]
     Active Substance: BENZNIDAZOLE
     Route: 048
     Dates: start: 20180524

REACTIONS (2)
  - Pruritus [None]
  - Drug administered to patient of inappropriate age [None]
